FAERS Safety Report 6549322-9 (Version None)
Quarter: 2010Q1

REPORT INFORMATION
  Report Type: 
  Country: None (occurrence: None)
  Receive Date: 20100125
  Receipt Date: 20100112
  Transmission Date: 20100710
  Serious: Yes (Other)
  Sender: FDA-Public Use
  Company Number: PHEH2010US00795

PATIENT
  Age: 7 Year
  Sex: Male

DRUGS (1)
  1. FOCALIN XR [Suspect]
     Dosage: 15 MG, QD
     Route: 048
     Dates: start: 20090227, end: 20090422

REACTIONS (3)
  - ARACHNOPHOBIA [None]
  - DERMATILLOMANIA [None]
  - EXCESSIVE EYE BLINKING [None]
